FAERS Safety Report 19808739 (Version 1)
Quarter: 2021Q3

REPORT INFORMATION
  Report Type: Spontaneous
  Country: CN (occurrence: CN)
  Receive Date: 20210908
  Receipt Date: 20210908
  Transmission Date: 20211014
  Serious: Yes (Hospitalization)
  Sender: FDA-Public Use
  Company Number: CN-TEVA-2021-CN-1949907

PATIENT
  Age: 15 Year
  Sex: Female

DRUGS (2)
  1. CYCLOSPORINE A [Suspect]
     Active Substance: CYCLOSPORINE
     Indication: APLASTIC ANAEMIA
     Route: 065
  2. MANNITOL. [Suspect]
     Active Substance: MANNITOL
     Indication: INTRACRANIAL PRESSURE INCREASED
     Route: 042

REACTIONS (4)
  - Cerebral venous thrombosis [Recovering/Resolving]
  - Papilloedema [Recovering/Resolving]
  - Drug ineffective [Unknown]
  - Intracranial pressure increased [Recovering/Resolving]
